FAERS Safety Report 19233282 (Version 1)
Quarter: 2021Q2

REPORT INFORMATION
  Report Type: Spontaneous
  Country: US (occurrence: US)
  Receive Date: 20210507
  Receipt Date: 20210507
  Transmission Date: 20210717
  Serious: Yes (Disabling, Other)
  Sender: FDA-Public Use
  Company Number: US-SA-2021SA150116

PATIENT
  Sex: Female

DRUGS (1)
  1. GOLD BOND ORIGINAL STRENGTH POWDER [Suspect]
     Active Substance: MENTHOL\ZINC OXIDE
     Dosage: UNK
     Route: 065
     Dates: start: 1975, end: 2019

REACTIONS (7)
  - Exposure to chemical pollution [Unknown]
  - Injury [Unknown]
  - Anhedonia [Unknown]
  - Loss of personal independence in daily activities [Unknown]
  - Mesothelioma [Unknown]
  - Pain [Unknown]
  - Anxiety [Unknown]
